FAERS Safety Report 4563243-2 (Version None)
Quarter: 2005Q1

REPORT INFORMATION
  Report Type: 
  Country: None (occurrence: None)
  Receive Date: 20050125
  Receipt Date: 20050119
  Transmission Date: 20050727
  Serious: Yes (Hospitalization)
  Sender: FDA-Public Use
  Company Number: USA-2005-0018413

PATIENT
  Age: 82 Year
  Sex: Male

DRUGS (2)
  1. CEFDITOREN PIVOXIL (SIMILAR TO NDA 21-222) (CEFDITOREN PIVOXIL) OTHER [Suspect]
     Dosage: 300 MG, DAILY, ORAL
     Route: 048
     Dates: end: 20041214
  2. ATELEC (CILNIDIPINE) [Concomitant]

REACTIONS (2)
  - DEPRESSED LEVEL OF CONSCIOUSNESS [None]
  - DYSPNOEA [None]
